FAERS Safety Report 23599561 (Version 1)
Quarter: 2024Q1

REPORT INFORMATION
  Report Type: Spontaneous
  Country: NL (occurrence: None)
  Receive Date: 20240306
  Receipt Date: 20240306
  Transmission Date: 20240409
  Serious: Yes (Other)
  Sender: FDA-Public Use
  Company Number: 2024A052276

PATIENT
  Age: 67 Year
  Sex: Female
  Weight: 55 kg

DRUGS (4)
  1. ESOMEPRAZOLE [Suspect]
     Active Substance: ESOMEPRAZOLE
     Indication: Gastritis bacterial
     Dosage: 20 MG, BID (FIRST WEEK 2X A DAY 1)
     Route: 048
     Dates: start: 20231230
  2. ESOMEPRAZOLE [Suspect]
     Active Substance: ESOMEPRAZOLE
     Indication: Gastritis bacterial
     Dosage: 20 MG, QD (THEN 1X 1 FOR 30 DAYS)
     Route: 048
     Dates: start: 20231230
  3. CLARITHROMYCIN [Suspect]
     Active Substance: CLARITHROMYCIN
     Indication: Gastritis bacterial
     Dosage: 1000 MG, QD (2 TABLETS ONCE A DAY)
     Dates: start: 20231230
  4. AMOXICILLIN [Suspect]
     Active Substance: AMOXICILLIN
     Indication: Gastritis bacterial
     Dosage: 1000 MG, BID (2X PER DAY 1 TABLET)
     Dates: start: 20231230

REACTIONS (2)
  - Cutaneous vasculitis [Recovering/Resolving]
  - Diarrhoea [Recovering/Resolving]
